FAERS Safety Report 12156463 (Version 1)
Quarter: 2016Q1

REPORT INFORMATION
  Report Type: Report from Study
  Country: FR (occurrence: FR)
  Receive Date: 20160307
  Receipt Date: 20160307
  Transmission Date: 20160526
  Serious: Yes (Other)
  Sender: FDA-Public Use
  Company Number: FR-VIIV HEALTHCARE LIMITED-B0550951A

PATIENT
  Age: 9 Month
  Sex: Male

DRUGS (3)
  1. NEVIRAPINE. [Suspect]
     Active Substance: NEVIRAPINE
  2. LAMIVUDINE. [Suspect]
     Active Substance: LAMIVUDINE
  3. ZIDOVUDINE. [Suspect]
     Active Substance: ZIDOVUDINE
     Indication: HIV INFECTION

REACTIONS (2)
  - Exposure during pregnancy [Unknown]
  - Pinealoblastoma [Unknown]

NARRATIVE: CASE EVENT DATE: 2001
